FAERS Safety Report 9363976 (Version 2)
Quarter: 2013Q2

REPORT INFORMATION
  Report Type: Spontaneous
  Country: KR (occurrence: None)
  Receive Date: 20130618
  Receipt Date: 20130628
  Transmission Date: 20140414
  Serious: Yes (Death)
  Sender: FDA-Public Use
  Company Number: KR-20130009

PATIENT
  Age: 75 Year
  Sex: Male

DRUGS (3)
  1. LIPIODOL [Suspect]
     Indication: THERAPEUTIC EMBOLISATION
     Dosage: 30 ML (30 ML, 1-2)
     Route: 037
  2. ADRIAMYCIN [Suspect]
     Dosage: 50 ML, 1 IN 1 D
     Route: 037
  3. GELFORM [Suspect]
     Indication: THERAPEUTIC EMBOLISATION
     Route: 037

REACTIONS (4)
  - Pulmonary embolism [None]
  - Acute respiratory distress syndrome [None]
  - Off label use [None]
  - Overdose [None]
